FAERS Safety Report 25073627 (Version 1)
Quarter: 2025Q1

REPORT INFORMATION
  Report Type: Spontaneous
  Country: US (occurrence: US)
  Receive Date: 20250313
  Receipt Date: 20250313
  Transmission Date: 20250409
  Serious: No
  Sender: ALEXION PHARMACEUTICALS
  Company Number: US-AstraZeneca-CH-00822865A

PATIENT

DRUGS (2)
  1. FASLODEX [Suspect]
     Active Substance: FULVESTRANT
     Route: 065
  2. FASLODEX [Suspect]
     Active Substance: FULVESTRANT

REACTIONS (13)
  - Feeling hot [Unknown]
  - Needle issue [Unknown]
  - Needle issue [Unknown]
  - Injury associated with device [Unknown]
  - Feeling hot [Unknown]
  - Feeling hot [Unknown]
  - Needle issue [Unknown]
  - Nasopharyngitis [Unknown]
  - Fatigue [Unknown]
  - Fatigue [Unknown]
  - Analgesic therapy [Unknown]
  - Malaise [Unknown]
  - Hand fracture [Unknown]
